FAERS Safety Report 15740065 (Version 2)
Quarter: 2019Q2

REPORT INFORMATION
  Report Type: Spontaneous
  Country: US (occurrence: US)
  Receive Date: 20181219
  Receipt Date: 20190509
  Transmission Date: 20190711
  Serious: Yes (Other)
  Sender: FDA-Public Use
  Company Number: US-SA-2018SA342457

PATIENT
  Age: 62 Year
  Sex: Female

DRUGS (7)
  1. DIGOXIN. [Concomitant]
     Active Substance: DIGOXIN
  2. ASPIRIN 81 [Concomitant]
     Active Substance: ASPIRIN
  3. FML [Concomitant]
     Active Substance: FLUOROMETHOLONE
  4. TAXOTERE [Suspect]
     Active Substance: DOCETAXEL
     Dosage: UNK UNK, Q3W
     Route: 042
     Dates: start: 201502, end: 201502
  5. TAXOTERE [Suspect]
     Active Substance: DOCETAXEL
     Indication: BREAST CANCER FEMALE
     Dosage: UNK UNK, Q3W
     Route: 042
     Dates: start: 201408, end: 201408
  6. RESTASIS [Concomitant]
     Active Substance: CYCLOSPORINE
  7. DORZOLAMIDE [Concomitant]
     Active Substance: DORZOLAMIDE

REACTIONS (3)
  - Alopecia [Recovering/Resolving]
  - Emotional distress [Unknown]
  - Psychological trauma [Unknown]

NARRATIVE: CASE EVENT DATE: 2015
